FAERS Safety Report 25356197 (Version 1)
Quarter: 2025Q2

REPORT INFORMATION
  Report Type: Spontaneous
  Country: GB (occurrence: GB)
  Receive Date: 20250526
  Receipt Date: 20250526
  Transmission Date: 20250716
  Serious: Yes (Other)
  Sender: TEVA
  Company Number: None

PATIENT
  Age: 72 Year
  Sex: Female
  Weight: 73 kg

DRUGS (6)
  1. NAPROXEN [Suspect]
     Active Substance: NAPROXEN
     Indication: Arthralgia
     Dosage: WITH FOOD WHEN NEEDED
     Route: 065
     Dates: start: 20250214, end: 20250304
  2. FLUTICASONE [Concomitant]
     Active Substance: FLUTICASONE
     Indication: Arthralgia
     Dates: start: 20250214
  3. COCODAMOL [Concomitant]
     Active Substance: ACETAMINOPHEN\CODEINE PHOSPHATE
     Indication: Arthralgia
     Dates: start: 20250214
  4. ESTRADIOL [Concomitant]
     Active Substance: ESTRADIOL
     Indication: Neck mass
     Dates: start: 20241213, end: 20250125
  5. LANSOPRAZOLE [Concomitant]
     Active Substance: LANSOPRAZOLE
     Indication: Arthralgia
     Dosage: MORNING WHEN REQUIRED
     Dates: start: 20250214
  6. ANORO ELLIPTA [Concomitant]
     Active Substance: UMECLIDINIUM BROMIDE\VILANTEROL TRIFENATATE
     Indication: Product used for unknown indication
     Dosage: 55MICROGRAMS/DOSE / 22MICROGRAMS/DOSE
     Dates: start: 20241213

REACTIONS (3)
  - Hallucination, visual [Recovered/Resolved]
  - Brain fog [Unknown]
  - Suicidal ideation [Recovered/Resolved]

NARRATIVE: CASE EVENT DATE: 20250220
